FAERS Safety Report 12589345 (Version 1)
Quarter: 2016Q3

REPORT INFORMATION
  Report Type: Spontaneous
  Country: US (occurrence: US)
  Receive Date: 20160725
  Receipt Date: 20160725
  Transmission Date: 20161109
  Serious: Yes (Hospitalization)
  Sender: FDA-Public Use
  Company Number: US-ACTAVIS-2016-15518

PATIENT
  Age: 27 Year
  Sex: Male

DRUGS (16)
  1. DOCUSATE SODIUM. [Concomitant]
     Active Substance: DOCUSATE SODIUM
     Indication: CONSTIPATION
     Dosage: 100 MG, BID
     Route: 048
     Dates: start: 20110707
  2. IBUPROFEN. [Concomitant]
     Active Substance: IBUPROFEN
     Indication: HEADACHE
  3. BISACODYL. [Concomitant]
     Active Substance: BISACODYL
     Indication: CONSTIPATION
     Dosage: 5-10MG, PRN
     Route: 048
     Dates: start: 20160127
  4. ACTIQ [Concomitant]
     Active Substance: FENTANYL CITRATE
     Indication: HEADACHE
  5. OXYCONTIN [Concomitant]
     Active Substance: OXYCODONE HYDROCHLORIDE
     Indication: NECK PAIN
     Dosage: 120 MG, Q8H
     Route: 048
     Dates: start: 20110707
  6. ACTIQ [Concomitant]
     Active Substance: FENTANYL CITRATE
     Indication: ABDOMINAL PAIN
  7. IBUPROFEN. [Concomitant]
     Active Substance: IBUPROFEN
     Indication: NECK PAIN
     Dosage: 800 MG, PRN
     Route: 048
     Dates: start: 20160427
  8. OXYCODONE HYDROCHLORIDE (AELLC) [Suspect]
     Active Substance: OXYCODONE HYDROCHLORIDE
     Indication: NECK PAIN
  9. ACTIQ [Concomitant]
     Active Substance: FENTANYL CITRATE
     Indication: NECK PAIN
     Dosage: 400 MCG, QID
     Route: 048
     Dates: start: 20160716
  10. METHYLPHENIDATE. [Concomitant]
     Active Substance: METHYLPHENIDATE
     Indication: FATIGUE
     Dosage: 10 MG, TID
     Route: 048
     Dates: start: 20140219
  11. OXYCONTIN [Concomitant]
     Active Substance: OXYCODONE HYDROCHLORIDE
     Indication: HEADACHE
  12. OXYCODONE HYDROCHLORIDE (AELLC) [Suspect]
     Active Substance: OXYCODONE HYDROCHLORIDE
     Indication: ABDOMINAL PAIN
     Dosage: 30-45MG, Q3H
     Route: 048
     Dates: start: 20110707
  13. LEVOTHYROXINE. [Concomitant]
     Active Substance: LEVOTHYROXINE
     Indication: HYPOTHYROIDISM
     Dosage: 112 MCG, DAILY
     Route: 048
     Dates: start: 20141110
  14. OXYCONTIN [Concomitant]
     Active Substance: OXYCODONE HYDROCHLORIDE
     Indication: ABDOMINAL PAIN
  15. OXYCODONE HYDROCHLORIDE (AELLC) [Suspect]
     Active Substance: OXYCODONE HYDROCHLORIDE
     Indication: HEADACHE
  16. POLYETHYLENE GLYCOL [Concomitant]
     Active Substance: POLYETHYLENE GLYCOLS
     Indication: CONSTIPATION
     Dosage: 17 G, PRN
     Route: 048
     Dates: start: 20160502

REACTIONS (3)
  - Pain [Recovering/Resolving]
  - Abdominal pain [Recovering/Resolving]
  - Drug ineffective [Recovering/Resolving]

NARRATIVE: CASE EVENT DATE: 20160620
